FAERS Safety Report 9115580 (Version 1)
Quarter: 2013Q1

REPORT INFORMATION
  Report Type: Spontaneous
  Country: US (occurrence: None)
  Receive Date: 20130221
  Receipt Date: 20130221
  Transmission Date: 20140127
  Serious: Yes (Hospitalization)
  Sender: FDA-Public Use
  Company Number: None

PATIENT
  Sex: Female
  Weight: 54.5 kg

DRUGS (1)
  1. AZATHROPRINE IMURAN 125 MG [Suspect]
     Indication: CROHN^S DISEASE
     Dosage: IMURAN 125MG ONCE DAILY ORAL
     Route: 048
     Dates: end: 2000

REACTIONS (2)
  - Rectal haemorrhage [None]
  - No therapeutic response [None]
